FAERS Safety Report 9000317 (Version 1)
Quarter: 2013Q1

REPORT INFORMATION
  Report Type: Spontaneous
  Country: DK (occurrence: DK)
  Receive Date: 20130107
  Receipt Date: 20130107
  Transmission Date: 20140127
  Serious: Yes (Disabling)
  Sender: FDA-Public Use
  Company Number: DK-MERCK-2011SP050479

PATIENT
  Age: 41 Year
  Sex: Male

DRUGS (5)
  1. PEGINTRON [Suspect]
     Indication: HEPATITIS
     Dosage: 240 MIKROGRAM/ML
     Dates: start: 20110610, end: 20110915
  2. COPEGUS [Suspect]
     Indication: HEPATITIS
     Dosage: STYRKE: 200 MG
     Route: 048
     Dates: start: 20110610, end: 20110915
  3. NORVIR [Concomitant]
     Indication: HIV INFECTION
     Dosage: UNK
     Dates: start: 201003
  4. PREZISTA [Concomitant]
     Indication: HIV INFECTION
     Dosage: UNK
     Dates: start: 201003
  5. TRUVADA [Concomitant]
     Indication: HIV INFECTION
     Dosage: UNK
     Dates: start: 201003

REACTIONS (3)
  - Blindness unilateral [Recovered/Resolved]
  - Eye haemorrhage [Recovered/Resolved]
  - Visual impairment [Not Recovered/Not Resolved]
